FAERS Safety Report 24176978 (Version 1)
Quarter: 2024Q3

REPORT INFORMATION
  Report Type: Report from Study
  Country: ES (occurrence: ES)
  Receive Date: 20240806
  Receipt Date: 20240806
  Transmission Date: 20241017
  Serious: Yes (Other)
  Sender: ROCHE
  Company Number: ES-ROCHE-10000041826

PATIENT

DRUGS (2)
  1. ATEZOLIZUMAB [Suspect]
     Active Substance: ATEZOLIZUMAB
     Indication: Non-small cell lung cancer
     Dosage: EVERY 3 OR 4 WEEKS
     Route: 042
  2. ATEZOLIZUMAB [Suspect]
     Active Substance: ATEZOLIZUMAB
     Dosage: EVERY 3 OR 4 WEEKS
     Route: 065

REACTIONS (5)
  - Asthenia [Unknown]
  - Pruritus [Unknown]
  - Arthralgia [Unknown]
  - Skin toxicity [Unknown]
  - Autoimmune anaemia [Unknown]
